FAERS Safety Report 5021407-8 (Version None)
Quarter: 2006Q2

REPORT INFORMATION
  Report Type: 
  Country: None (occurrence: None)
  Receive Date: 20060425
  Receipt Date: 20050301
  Transmission Date: 20061013
  Serious: No
  Sender: FDA-Public Use
  Company Number: WAES 0503USA00104

PATIENT
  Age: 6 Year
  Sex: Male
  Weight: 33.1126 kg

DRUGS (2)
  1. SINGULAIR [Suspect]
     Dosage: PO
     Route: 048
     Dates: end: 20040301
  2. RITALIN [Concomitant]

REACTIONS (1)
  - ATTENTION DEFICIT/HYPERACTIVITY DISORDER [None]
